FAERS Safety Report 7873792-7 (Version None)
Quarter: 2011Q4

REPORT INFORMATION
  Report Type: 
  Country: None (occurrence: None)
  Receive Date: 20111030
  Receipt Date: 20110510
  Transmission Date: 20120403
  Serious: No
  Sender: FDA-Public Use
  Company Number: US-AMGEN-USASP2011024213

PATIENT
  Age: 54 Year
  Sex: Female

DRUGS (4)
  1. ENBREL [Suspect]
     Indication: RHEUMATOID ARTHRITIS
  2. ACYCLOVIR [Concomitant]
  3. LEXAPRO [Concomitant]
  4. ENBREL [Suspect]
     Dates: start: 20030401, end: 20110428

REACTIONS (4)
  - JOINT SWELLING [None]
  - FEELING HOT [None]
  - HERPES ZOSTER [None]
  - BURNING SENSATION [None]
